FAERS Safety Report 21046775 (Version 1)
Quarter: 2022Q3

REPORT INFORMATION
  Report Type: Spontaneous
  Country: DE (occurrence: DE)
  Receive Date: 20220706
  Receipt Date: 20220706
  Transmission Date: 20221027
  Serious: No
  Sender: FDA-Public Use
  Company Number: DE-ALKEM LABORATORIES LIMITED-DE-ALKEM-2022-04584

PATIENT
  Age: 64 Year
  Sex: Male

DRUGS (5)
  1. IBUPROFEN [Suspect]
     Active Substance: IBUPROFEN
     Indication: Small cell lung cancer
     Dosage: UNK
     Route: 065
  2. ACETAMINOPHEN [Suspect]
     Active Substance: ACETAMINOPHEN
     Indication: Small cell lung cancer
     Dosage: UNK
     Route: 065
  3. CARBOPLATIN [Suspect]
     Active Substance: CARBOPLATIN
     Indication: Small cell lung cancer
     Dosage: UNK
     Route: 065
  4. ETOPOSIDE [Suspect]
     Active Substance: ETOPOSIDE
     Indication: Small cell lung cancer
     Dosage: UNK
     Route: 065
  5. TECENTRIQ [Suspect]
     Active Substance: ATEZOLIZUMAB
     Indication: Small cell lung cancer
     Dosage: UNK
     Route: 065
     Dates: start: 20210211

REACTIONS (12)
  - Pyrexia [Unknown]
  - Chest pain [Unknown]
  - Micturition disorder [Recovering/Resolving]
  - Asthenia [Unknown]
  - Chest discomfort [Unknown]
  - Fatigue [Unknown]
  - Hyperhidrosis [Unknown]
  - Cough [Unknown]
  - Decreased appetite [Unknown]
  - Weight decreased [Unknown]
  - Productive cough [Unknown]
  - Bowel movement irregularity [Unknown]
